FAERS Safety Report 14026198 (Version 1)
Quarter: 2017Q3

REPORT INFORMATION
  Report Type: Spontaneous
  Country: ES (occurrence: ES)
  Receive Date: 20170929
  Receipt Date: 20170929
  Transmission Date: 20171128
  Serious: Yes (Life-Threatening, Hospitalization)
  Sender: FDA-Public Use
  Company Number: ES-MYLANLABS-2017M1060738

PATIENT
  Age: 55 Year
  Sex: Male

DRUGS (10)
  1. REMIFENTANIL [Suspect]
     Active Substance: REMIFENTANIL
     Dosage: 0.1-0.3MG/KG/H TO INDUCE SEDATION.
     Route: 065
  2. DEXAMETHASONE. [Suspect]
     Active Substance: DEXAMETHASONE
     Indication: OEDEMA
     Dosage: 8MG
     Route: 042
  3. PROPOFOL. [Suspect]
     Active Substance: PROPOFOL
     Dosage: 4-6MG/KG/H TO INDUCE SEDATION
     Route: 065
  4. ROCURONIUM [Suspect]
     Active Substance: ROCURONIUM BROMIDE
     Indication: PRODUCT USED FOR UNKNOWN INDICATION
     Dosage: 0.6MG/KG BOLUS
     Route: 050
  5. PROPOFOL. [Suspect]
     Active Substance: PROPOFOL
     Indication: INDUCTION OF ANAESTHESIA
     Dosage: 2-3 MICROG/ML; FOLLOWED BY 4-6MG/KG/H TO INDUCE SEDATION.
     Route: 050
  6. LEVETIRACETAM. [Concomitant]
     Active Substance: LEVETIRACETAM
     Indication: PROPHYLAXIS
     Dosage: 1G
     Route: 042
  7. AMIODARONE [Concomitant]
     Active Substance: AMIODARONE
     Indication: ATRIAL FIBRILLATION
     Dosage: 300MG
     Route: 042
  8. DOCETAXEL. [Suspect]
     Active Substance: DOCETAXEL
     Indication: PROSTATE CANCER METASTATIC
     Dosage: UNK
     Route: 065
  9. PREDNISONE. [Suspect]
     Active Substance: PREDNISONE
     Indication: PROSTATE CANCER METASTATIC
     Dosage: UNK
     Route: 065
  10. REMIFENTANIL [Suspect]
     Active Substance: REMIFENTANIL
     Indication: MAINTENANCE OF ANAESTHESIA
     Dosage: 3-6 NG/ML; FOLLOWED BY 0.1-0.3MG/KG/H
     Route: 050

REACTIONS (3)
  - Blindness cortical [Unknown]
  - Posterior reversible encephalopathy syndrome [Recovering/Resolving]
  - Haemodynamic instability [Recovering/Resolving]
